FAERS Safety Report 25019535 (Version 1)
Quarter: 2025Q1

REPORT INFORMATION
  Report Type: Spontaneous
  Country: IT (occurrence: IT)
  Receive Date: 20250227
  Receipt Date: 20250227
  Transmission Date: 20250409
  Serious: Yes (Hospitalization, Other)
  Sender: NOVITIUM PHARMA
  Company Number: IT-NOVITIUMPHARMA-2025ITNVP00473

PATIENT
  Age: 39 Year
  Sex: Female

DRUGS (3)
  1. PREDNISONE [Suspect]
     Active Substance: PREDNISONE
     Indication: Retinopathy
  2. PREDNISONE [Suspect]
     Active Substance: PREDNISONE
     Indication: Myasthenia gravis
  3. PREDNISONE [Suspect]
     Active Substance: PREDNISONE
     Indication: Thymoma

REACTIONS (3)
  - Visceral leishmaniasis [Recovered/Resolved]
  - COVID-19 [Unknown]
  - Acute respiratory distress syndrome [Unknown]
